FAERS Safety Report 7580311-1 (Version None)
Quarter: 2011Q2

REPORT INFORMATION
  Report Type: 
  Country: None (occurrence: None)
  Receive Date: 20110629
  Receipt Date: 20110617
  Transmission Date: 20111010
  Serious: Yes (Hospitalization)
  Sender: FDA-Public Use
  Company Number: DE-ROCHE-694019

PATIENT
  Sex: Female
  Weight: 70 kg

DRUGS (2)
  1. RIBAVIRIN [Suspect]
     Route: 065
  2. PEGINTERFERON ALFA-2A [Suspect]
     Route: 058
     Dates: start: 20090508

REACTIONS (1)
  - FEMORAL ARTERY EMBOLISM [None]
